FAERS Safety Report 25844977 (Version 3)
Quarter: 2025Q4

REPORT INFORMATION
  Report Type: Spontaneous
  Country: CH (occurrence: CH)
  Receive Date: 20250925
  Receipt Date: 20251027
  Transmission Date: 20260118
  Serious: No
  Sender: TRAVERE THERAPEUTICS
  Company Number: CH-BEH-2025216554

PATIENT
  Sex: Female

DRUGS (2)
  1. FILSPARI [Suspect]
     Active Substance: SPARSENTAN
     Indication: IgA nephropathy
     Dosage: 200 MG
     Route: 065
     Dates: start: 20250627, end: 2025
  2. FILSPARI [Suspect]
     Active Substance: SPARSENTAN
     Dosage: 400 MG, TAKEN IN THE EVENING
     Route: 065
     Dates: start: 2025

REACTIONS (3)
  - Gastrointestinal disorder [Not Recovered/Not Resolved]
  - Blood pressure increased [Recovered/Resolved]
  - Headache [Recovered/Resolved]

NARRATIVE: CASE EVENT DATE: 20250627
